FAERS Safety Report 4575638-1 (Version None)
Quarter: 2005Q1

REPORT INFORMATION
  Report Type: 
  Country: None (occurrence: None)
  Receive Date: 20050209
  Receipt Date: 20050128
  Transmission Date: 20050727
  Serious: Yes (Other)
  Sender: FDA-Public Use
  Company Number: AU-GLAXOSMITHKLINE-B0370118A

PATIENT
  Age: 48 Year
  Sex: Female
  Weight: 72 kg

DRUGS (7)
  1. IMIGRAN [Suspect]
     Indication: MIGRAINE
     Route: 048
     Dates: end: 19940114
  2. SANDOMIGRAN [Concomitant]
     Indication: MIGRAINE
     Dosage: 2MG PER DAY
     Route: 065
  3. CLONAZEPAM [Concomitant]
     Dosage: 1MG PER DAY
     Route: 065
  4. VERACAPS [Concomitant]
     Dosage: 1U PER DAY
     Route: 048
  5. ZANTAC [Concomitant]
     Indication: DUODENAL ULCER
     Dosage: 2U PER DAY
     Route: 065
  6. DI-GESIC [Concomitant]
     Indication: MIGRAINE
     Dosage: 2U AS REQUIRED
     Route: 065
  7. MOCLOBEMIDE [Concomitant]
     Indication: DEPRESSION
     Dosage: 300MG PER DAY
     Route: 065

REACTIONS (2)
  - DISTURBANCE IN ATTENTION [None]
  - HALLUCINATION [None]
